FAERS Safety Report 8936030 (Version 1)
Quarter: 2012Q4

REPORT INFORMATION
  Report Type: Spontaneous
  Country: US (occurrence: None)
  Receive Date: 20121128
  Receipt Date: 20121128
  Transmission Date: 20130627
  Serious: Yes (Life-Threatening, Hospitalization)
  Sender: FDA-Public Use
  Company Number: None

PATIENT
  Age: 52 Year
  Sex: Male
  Weight: 73.3 kg

DRUGS (1)
  1. WARFARIN [Suspect]
     Indication: ATRIAL FIBRILLATION
     Route: 048
     Dates: start: 20010629, end: 20121010

REACTIONS (1)
  - Haemorrhage intracranial [None]
